FAERS Safety Report 7237665-5 (Version None)
Quarter: 2011Q1

REPORT INFORMATION
  Report Type: 
  Country: None (occurrence: None)
  Receive Date: 20110121
  Receipt Date: 20101011
  Transmission Date: 20110831
  Serious: Yes (Death)
  Sender: FDA-Public Use
  Company Number: AU-ROCHE-732364

PATIENT
  Age: 32 Year
  Sex: Female

DRUGS (7)
  1. CODEINE [Suspect]
     Route: 065
  2. TRAMADOL HYDROCHLORIDE [Suspect]
     Route: 065
  3. NAPROXEN [Suspect]
     Route: 065
  4. DIAZEPAM [Suspect]
     Route: 065
  5. DOXEPIN HYDROCHLORIDE [Suspect]
     Route: 065
  6. PARACETAMOL [Suspect]
     Route: 065
  7. THC [Suspect]
     Route: 065

REACTIONS (1)
  - TOXICITY TO VARIOUS AGENTS [None]
